FAERS Safety Report 7119803-8 (Version None)
Quarter: 2010Q4

REPORT INFORMATION
  Report Type: 
  Country: None (occurrence: None)
  Receive Date: 20101123
  Receipt Date: 20100825
  Transmission Date: 20110411
  Serious: No
  Sender: FDA-Public Use
  Company Number: US-BRISTOL-MYERS SQUIBB COMPANY-15254790

PATIENT
  Age: 67 Year
  Sex: Male

DRUGS (6)
  1. ONGLYZA [Suspect]
  2. ATENOLOL [Concomitant]
  3. PANTOPRAZOLE [Concomitant]
  4. PRAVASTATIN SODIUM [Concomitant]
     Dosage: 2 TABS
  5. SERTRALINE HYDROCHLORIDE [Concomitant]
  6. LORAZEPAM [Concomitant]

REACTIONS (2)
  - FATIGUE [None]
  - INSOMNIA [None]
